FAERS Safety Report 16206519 (Version 1)
Quarter: 2019Q2

REPORT INFORMATION
  Report Type: Spontaneous
  Country: US (occurrence: US)
  Receive Date: 20190416
  Receipt Date: 20190416
  Transmission Date: 20190711
  Serious: No
  Sender: FDA-Public Use
  Company Number: None

PATIENT
  Age: 13 Year
  Sex: Female
  Weight: 45 kg

DRUGS (2)
  1. MIRALAX [Concomitant]
     Active Substance: POLYETHYLENE GLYCOL 3350
     Indication: FAECES HARD
     Dosage: ?          QUANTITY:10 MILLIGRAMS;OTHER FREQUENCY:ONE TIME;?
     Route: 048
     Dates: start: 20190415, end: 20190415
  2. ONE A DAY VIUTACRAVES WOMEN^S MULTI-VITAMIN [Concomitant]

REACTIONS (10)
  - Nausea [None]
  - Vomiting [None]
  - Dyspnoea [None]
  - Muscle tightness [None]
  - Fatigue [None]
  - Tremor [None]
  - Headache [None]
  - Vomiting projectile [None]
  - Head discomfort [None]
  - Erythema [None]

NARRATIVE: CASE EVENT DATE: 20190415
